FAERS Safety Report 17442348 (Version 3)
Quarter: 2020Q1

REPORT INFORMATION
  Report Type: Spontaneous
  Country: BR (occurrence: BR)
  Receive Date: 20200220
  Receipt Date: 20200228
  Transmission Date: 20200409
  Serious: Yes (Hospitalization, Other)
  Sender: FDA-Public Use
  Company Number: BR-B.I. PHARMACEUTICALS,INC./RIDGEFIELD-2020-BI-009570

PATIENT
  Age: 74 Year
  Sex: Female

DRUGS (5)
  1. DAFLON [DIOSMIN] [Concomitant]
     Active Substance: DIOSMIN
     Indication: PERIPHERAL VENOUS DISEASE
     Route: 065
  2. PRADAXA [Suspect]
     Active Substance: DABIGATRAN ETEXILATE MESYLATE
     Route: 065
     Dates: start: 20190219
  3. SELOZOK [Concomitant]
     Active Substance: METOPROLOL SUCCINATE
     Indication: HEART RATE ABNORMAL
     Route: 065
  4. DIGOXINA [Concomitant]
     Active Substance: DIGOXIN
     Indication: HEART RATE ABNORMAL
     Route: 065
  5. PRADAXA [Suspect]
     Active Substance: DABIGATRAN ETEXILATE MESYLATE
     Indication: ATRIAL FIBRILLATION
     Route: 065
     Dates: start: 2019, end: 20200217

REACTIONS (1)
  - Cholecystitis acute [Recovered/Resolved]

NARRATIVE: CASE EVENT DATE: 20200218
